FAERS Safety Report 4509530-5 (Version None)
Quarter: 2004Q4

REPORT INFORMATION
  Report Type: 
  Country: None (occurrence: None)
  Receive Date: 20041119
  Receipt Date: 20041101
  Transmission Date: 20050328
  Serious: Yes (Other)
  Sender: FDA-Public Use
  Company Number: USA041082511

PATIENT
  Age: 17 Year
  Sex: Female

DRUGS (1)
  1. STRATTERA [Suspect]
     Dosage: 40 MG DAY

REACTIONS (4)
  - BLOOD PRESSURE FLUCTUATION [None]
  - CYANOSIS [None]
  - GRAND MAL CONVULSION [None]
  - STRESS SYMPTOMS [None]
